FAERS Safety Report 8320966-7 (Version None)
Quarter: 2012Q2

REPORT INFORMATION
  Report Type: 
  Country: None (occurrence: None)
  Receive Date: 20120430
  Receipt Date: 20120419
  Transmission Date: 20120825
  Serious: Yes (Other)
  Sender: FDA-Public Use
  Company Number: DE-JNJFOC-20120305968

PATIENT
  Sex: Female
  Weight: 100 kg

DRUGS (3)
  1. MARCUMAR [Concomitant]
     Indication: ATRIAL FIBRILLATION
     Dates: start: 20111201, end: 20120201
  2. XARELTO [Suspect]
     Indication: ATRIAL FIBRILLATION
     Route: 048
     Dates: start: 20120213, end: 20120216
  3. MARCUMAR [Concomitant]
     Dates: start: 20120101

REACTIONS (4)
  - OEDEMA PERIPHERAL [None]
  - FACE OEDEMA [None]
  - DYSPNOEA [None]
  - BRONCHOSPASM [None]
